FAERS Safety Report 19175149 (Version 1)
Quarter: 2021Q2

REPORT INFORMATION
  Report Type: Spontaneous
  Country: FR (occurrence: FR)
  Receive Date: 20210424
  Receipt Date: 20210424
  Transmission Date: 20210717
  Serious: Yes (Hospitalization)
  Sender: FDA-Public Use
  Company Number: FR-TEVA-2021-FR-1903409

PATIENT
  Age: 35 Year
  Sex: Female
  Weight: 58 kg

DRUGS (11)
  1. VINCRISTINE HOSPIRA [Concomitant]
     Active Substance: VINCRISTINE
  2. OPTIMIZETTE 75 MICROGRAMMES, COMPRIME PELLICULE [Concomitant]
     Active Substance: DESOGESTREL
  3. PRIMPERAN [Concomitant]
     Active Substance: METOCLOPRAMIDE HYDROCHLORIDE
  4. TIVICAY 50 MG, COMPRIME PELLICULE [Concomitant]
  5. VALACICLOVIR ARROW 500 MG, COMPRIME PELLICULE [Concomitant]
     Active Substance: VALACYCLOVIR HYDROCHLORIDE
  6. ETOPOSIDE TEVA [Suspect]
     Active Substance: ETOPOSIDE
     Indication: BURKITT^S LYMPHOMA
     Dosage: 50 MG/M2
     Route: 042
     Dates: start: 20210319
  7. FLUCONAZOLE ARROW 200 MG, GELULE [Suspect]
     Active Substance: FLUCONAZOLE
     Indication: CRYPTOCOCCOSIS
     Dosage: 400 MG
     Route: 048
     Dates: start: 20210317
  8. DOXORUBICINE ACCORD [Concomitant]
     Active Substance: DOXORUBICIN
  9. DOVATO 50 MG/300 MG, COMPRIME PELLICULE [Concomitant]
  10. ALPRAZOLAM ARROW [Concomitant]
     Active Substance: ALPRAZOLAM
  11. WELLVONE 750 MG/5 ML, SUSPENSION BUVABLE [Concomitant]
     Active Substance: ATOVAQUONE

REACTIONS (1)
  - Cholestasis [Not Recovered/Not Resolved]

NARRATIVE: CASE EVENT DATE: 20210329
